FAERS Safety Report 5754854-7 (Version None)
Quarter: 2008Q2

REPORT INFORMATION
  Report Type: 
  Country: None (occurrence: None)
  Receive Date: 20080527
  Receipt Date: 20080507
  Transmission Date: 20081010
  Serious: Yes (Death)
  Sender: FDA-Public Use
  Company Number: 2008AL003814

PATIENT
  Age: 85 Year
  Sex: Male
  Weight: 76.6579 kg

DRUGS (4)
  1. DIGOXIN [Suspect]
     Indication: ARTERIOSCLEROSIS
     Dosage: 0.125MG DAILY PO
     Route: 048
     Dates: start: 20070322, end: 20080308
  2. LIPITOR [Concomitant]
  3. FUROSEMIDE [Concomitant]
  4. POTASSIUM CHLORIDE [Concomitant]

REACTIONS (1)
  - ARTERIAL THERAPEUTIC PROCEDURE [None]
